FAERS Safety Report 8581701-0 (Version None)
Quarter: 2012Q3

REPORT INFORMATION
  Report Type: 
  Country: None (occurrence: None)
  Receive Date: 20120801
  Receipt Date: 20120801
  Transmission Date: 20120928
  Serious: Yes (Other)
  Sender: FDA-Public Use
  Company Number: None

PATIENT
  Age: 60 Year
  Sex: Female
  Weight: 108.8633 kg

DRUGS (1)
  1. CRESTOR [Suspect]
     Indication: DYSLIPIDAEMIA
     Dosage: 20 MG 2@PM

REACTIONS (5)
  - CHROMATURIA [None]
  - NO THERAPEUTIC RESPONSE [None]
  - HYPOAESTHESIA [None]
  - PAIN IN EXTREMITY [None]
  - FATIGUE [None]
